FAERS Safety Report 6766074-8 (Version None)
Quarter: 2010Q2

REPORT INFORMATION
  Report Type: 
  Country: None (occurrence: None)
  Receive Date: 20100611
  Receipt Date: 20100603
  Transmission Date: 20101027
  Serious: Yes (Other)
  Sender: FDA-Public Use
  Company Number: B0659991A

PATIENT
  Sex: Male

DRUGS (2)
  1. ARIXTRA [Suspect]
     Indication: PHLEBITIS
     Route: 058
  2. PREVISCAN [Concomitant]
     Indication: PHLEBITIS
     Route: 048
     Dates: start: 20100101

REACTIONS (1)
  - TOXIC EPIDERMAL NECROLYSIS [None]
